FAERS Safety Report 10068426 (Version 1)
Quarter: 2014Q2

REPORT INFORMATION
  Report Type: Spontaneous
  Country: IR (occurrence: IR)
  Receive Date: 20140409
  Receipt Date: 20140409
  Transmission Date: 20141212
  Serious: Yes (Death, Hospitalization, Other)
  Sender: FDA-Public Use
  Company Number: IR-MILLENNIUM PHARMACEUTICALS, INC.-2014TUS002651

PATIENT
  Age: 10 Year
  Sex: Male

DRUGS (1)
  1. COLCHICINE [Suspect]

REACTIONS (20)
  - Acute respiratory distress syndrome [Fatal]
  - Disseminated intravascular coagulation [Fatal]
  - Hypotension [Unknown]
  - Pyrexia [Unknown]
  - Haematuria [Unknown]
  - Tachycardia [Unknown]
  - Tachypnoea [Unknown]
  - Upper gastrointestinal haemorrhage [Unknown]
  - Agitation [Unknown]
  - Jaundice [Unknown]
  - Periorbital oedema [Unknown]
  - Ecchymosis [Unknown]
  - Haemorrhage [Unknown]
  - Depressed level of consciousness [Unknown]
  - Overdose [Unknown]
  - Nausea [Unknown]
  - Vomiting [Unknown]
  - Abdominal tenderness [Unknown]
  - Thrombocytopenia [Unknown]
  - Rhabdomyolysis [Unknown]
